FAERS Safety Report 5906317-3 (Version None)
Quarter: 2008Q4

REPORT INFORMATION
  Report Type: 
  Country: None (occurrence: None)
  Receive Date: 20081002
  Receipt Date: 20080520
  Transmission Date: 20090506
  Serious: No
  Sender: FDA-Public Use
  Company Number: US-ABBOTT-08P-163-0455601-00

PATIENT
  Age: 46 Year
  Sex: Male

DRUGS (3)
  1. TRICOR [Suspect]
     Indication: BLOOD TRIGLYCERIDES INCREASED
     Dosage: NOT REPORTED
  2. SIMVASTATIN [Concomitant]
     Indication: BLOOD TRIGLYCERIDES INCREASED
     Dosage: NOT REPORTED
  3. EZETIMIBE [Concomitant]
     Indication: BLOOD TRIGLYCERIDES INCREASED
     Dosage: NOT REPORTED

REACTIONS (2)
  - ARTHRALGIA [None]
  - ASTHENIA [None]
